FAERS Safety Report 4479042-6 (Version None)
Quarter: 2004Q4

REPORT INFORMATION
  Report Type: 
  Country: None (occurrence: None)
  Receive Date: 20041015
  Receipt Date: 20040922
  Transmission Date: 20050328
  Serious: Yes (Hospitalization)
  Sender: FDA-Public Use
  Company Number: 2004-BP-05261YA (1)

PATIENT
  Age: 81 Year
  Sex: Male

DRUGS (10)
  1. TAMSULOSIN CAPSULES (NR) [Suspect]
     Indication: DYSURIA
     Dosage: 0.4 MG (NR) PO
     Route: 048
     Dates: start: 20040626, end: 20040629
  2. FAMOTIDINE [Concomitant]
  3. SM POWDER (TAKA-DIASTASE/NATURAL AGENTS) (NR) [Concomitant]
  4. BUFFERIN (ASPIRIN/DIALUMINATE) (NR) [Concomitant]
  5. DILTIAZEM HYDROCHLORIDE (DILTIAZEM HYDROCHLORIDE) (NR) [Concomitant]
  6. NICORANDIL (NICORANDIL) (NR) [Concomitant]
  7. DIPYRIDAMOLE [Concomitant]
  8. ALOSENN (ALOSENN) (NR) [Concomitant]
  9. MAGNESIUM OXIDE (NR) [Concomitant]
  10. NAFTOPIDIL (NAFTOPIDIL) (NR) [Concomitant]

REACTIONS (3)
  - ANGINA PECTORIS [None]
  - ATRIAL FIBRILLATION [None]
  - CONCOMITANT DISEASE AGGRAVATED [None]
